FAERS Safety Report 5639728-4 (Version None)
Quarter: 2008Q1

REPORT INFORMATION
  Report Type: 
  Country: None (occurrence: None)
  Receive Date: 20080222
  Receipt Date: 20080207
  Transmission Date: 20080703
  Serious: Yes (Other)
  Sender: FDA-Public Use
  Company Number: JPI-P-002987

PATIENT
  Age: 2 Year
  Sex: Male

DRUGS (2)
  1. XYREM (OXYSATE SODIUM) (500 MILLIGRAM/MILLILITERS, SOLUTION)(SODIUM OX [Suspect]
     Indication: SLEEP DISORDER
     Dosage: ORAL
     Route: 048
     Dates: start: 20080101, end: 20080101
  2. UNSPECIFIED ANTI-SEIZURE MEDICATIONS (ALL OTHER THERAPEUTIC PRODUCTS) [Concomitant]

REACTIONS (1)
  - CONVULSION [None]
